FAERS Safety Report 8364648-4 (Version None)
Quarter: 2012Q2

REPORT INFORMATION
  Report Type: 
  Country: None (occurrence: None)
  Receive Date: 20120516
  Receipt Date: 20120425
  Transmission Date: 20120825
  Serious: No
  Sender: FDA-Public Use
  Company Number: NL-AMGEN-NLDCT2012001517

PATIENT
  Age: 61 Year
  Sex: Male

DRUGS (9)
  1. ASPIRIN [Concomitant]
     Dosage: UNK
  2. BETAMETHASONE [Concomitant]
     Dosage: UNK
  3. CALCITRIOL [Concomitant]
     Dosage: UNK
  4. CLOBETASOL PROPIONATE [Concomitant]
     Dosage: UNK
  5. ETANERCEPT [Suspect]
     Indication: PSORIATIC ARTHROPATHY
     Dosage: 50 MG, QWK
     Dates: start: 20080731
  6. CALCIPOTRIENE [Concomitant]
     Dosage: UNK
  7. ETANERCEPT [Suspect]
     Indication: PSORIASIS
  8. DICLOFENAC SODIUM [Concomitant]
     Indication: UPPER LIMB FRACTURE
     Dosage: UNK
  9. KETOCONAZOLE [Concomitant]
     Dosage: UNK

REACTIONS (1)
  - HAEMORRHOIDS [None]
